FAERS Safety Report 4694720-1 (Version None)
Quarter: 2005Q2

REPORT INFORMATION
  Report Type: 
  Country: None (occurrence: None)
  Receive Date: 20050620
  Receipt Date: 20050601
  Transmission Date: 20051028
  Serious: Yes (Other)
  Sender: FDA-Public Use
  Company Number: PHBS2005CA07977

PATIENT
  Age: 56 Year
  Sex: Female

DRUGS (1)
  1. ZOMETA [Suspect]
     Dosage: 4 MG, Q3MO
     Route: 042
     Dates: start: 20021021, end: 20050228

REACTIONS (11)
  - ACTINOMYCOSIS [None]
  - ASEPTIC NECROSIS BONE [None]
  - BACTERIAL INFECTION [None]
  - FUNGAL INFECTION [None]
  - GRANULOMA [None]
  - HYPERPLASIA [None]
  - INFLAMMATION [None]
  - OSTEOMYELITIS [None]
  - TOOTH ABSCESS [None]
  - TOOTH EXTRACTION [None]
  - TOOTHACHE [None]
